FAERS Safety Report 4767556-0 (Version None)
Quarter: 2005Q3

REPORT INFORMATION
  Report Type: 
  Country: None (occurrence: None)
  Receive Date: 20050913
  Receipt Date: 20050907
  Transmission Date: 20060218
  Serious: Yes (Death, Hospitalization)
  Sender: FDA-Public Use
  Company Number: US-JNJFOC-20050901597

PATIENT
  Age: 44 Year
  Sex: Male

DRUGS (4)
  1. ACETAMINOPHEN [Suspect]
     Route: 048
  2. ACETAMINOPHEN [Suspect]
     Indication: INTENTIONAL MISUSE
     Route: 048
  3. METHAMPHETAMINE HCL [Suspect]
     Indication: INTENTIONAL MISUSE
     Route: 048
  4. UNKNOWN OPIOID [Suspect]
     Indication: INTENTIONAL MISUSE
     Route: 048

REACTIONS (7)
  - CEREBELLAR INFARCTION [None]
  - COLITIS ISCHAEMIC [None]
  - DIVERTICULAR PERFORATION [None]
  - HAEMORRHAGIC CEREBRAL INFARCTION [None]
  - INTENTIONAL MISUSE [None]
  - PORTAL VEIN THROMBOSIS [None]
  - RHABDOMYOLYSIS [None]
